FAERS Safety Report 9125900 (Version 1)
Quarter: 2013Q1

REPORT INFORMATION
  Report Type: Spontaneous
  Country: US (occurrence: US)
  Receive Date: 20130227
  Receipt Date: 20130227
  Transmission Date: 20140127
  Serious: Yes (Other)
  Sender: FDA-Public Use
  Company Number: US-PFIZER INC-2013066672

PATIENT
  Age: 25 Year
  Sex: Male
  Weight: 72.56 kg

DRUGS (1)
  1. BENEFIX [Suspect]
     Indication: FACTOR IX DEFICIENCY
     Dosage: 20 IU/KG, AS NEEDED (ON-DEMAND USE PER INFUSION)

REACTIONS (1)
  - Joint injury [Unknown]
